FAERS Safety Report 23630986 (Version 1)
Quarter: 2024Q1

REPORT INFORMATION
  Report Type: Spontaneous
  Country: FR (occurrence: FR)
  Receive Date: 20240314
  Receipt Date: 20240314
  Transmission Date: 20240410
  Serious: Yes (Other)
  Sender: FDA-Public Use
  Company Number: None

PATIENT
  Age: 55 Year
  Sex: Female
  Weight: 92.5 kg

DRUGS (1)
  1. ATORVASTATIN [Suspect]
     Active Substance: ATORVASTATIN
     Indication: Dyslipidaemia
     Dosage: 20 MG/D
     Dates: start: 20221027, end: 20240105

REACTIONS (2)
  - Tendonitis [Not Recovered/Not Resolved]
  - Tendon disorder [Recovered/Resolved]

NARRATIVE: CASE EVENT DATE: 20231120
